FAERS Safety Report 4817656-1 (Version None)
Quarter: 2005Q3

REPORT INFORMATION
  Report Type: 
  Country: None (occurrence: None)
  Receive Date: 20050929
  Receipt Date: 20050610
  Transmission Date: 20060218
  Serious: No
  Sender: FDA-Public Use
  Company Number: 05P-163-0302848-00

PATIENT
  Age: 64 Year
  Sex: Female

DRUGS (4)
  1. HUMIRA [Suspect]
     Indication: RHEUMATOID ARTHRITIS
     Dosage: 40 MG, 1 IN 2 WK, SUBCUTANEOUS
     Route: 058
     Dates: start: 20050408, end: 20050601
  2. LEVOTHYROXINE SODIUM [Concomitant]
  3. METHOTREXATE SODIUM [Concomitant]
  4. FOLIC ACID [Concomitant]

REACTIONS (5)
  - BRONCHITIS [None]
  - FEELING JITTERY [None]
  - FLUSHING [None]
  - PNEUMONIA [None]
  - WHITE BLOOD CELL COUNT INCREASED [None]
